FAERS Safety Report 7997549-1 (Version None)
Quarter: 2011Q4

REPORT INFORMATION
  Report Type: 
  Country: None (occurrence: None)
  Receive Date: 20111221
  Receipt Date: 20111215
  Transmission Date: 20120403
  Serious: Yes (Other)
  Sender: FDA-Public Use
  Company Number: GB-PFIZER INC-2011306069

PATIENT
  Age: 7 Year
  Sex: Female

DRUGS (2)
  1. VFEND [Suspect]
     Indication: FUNGAL INFECTION
  2. VFEND [Suspect]
     Indication: CYSTIC FIBROSIS
     Route: 048

REACTIONS (2)
  - VISUAL IMPAIRMENT [None]
  - CHLOROPSIA [None]
